FAERS Safety Report 4477838-8 (Version None)
Quarter: 2004Q4

REPORT INFORMATION
  Report Type: 
  Country: None (occurrence: None)
  Receive Date: 20041014
  Receipt Date: 20041007
  Transmission Date: 20050328
  Serious: Yes (Death)
  Sender: FDA-Public Use
  Company Number: 2004AC00065

PATIENT
  Age: 10 Year
  Sex: Male

DRUGS (7)
  1. PROPOFOL [Suspect]
     Indication: STATUS EPILEPTICUS
     Dosage: 5.5 MG/KG /HR
  2. PROPOFOL [Suspect]
     Indication: STATUS EPILEPTICUS
     Dosage: 9 MG/KG /HR
  3. PROPOFOL [Suspect]
     Indication: STATUS EPILEPTICUS
     Dosage: 6 MG/KG /HR
  4. VALPROATE [Concomitant]
  5. PHENYTOIN [Concomitant]
  6. CLOBAZAM [Concomitant]
  7. OXCARBAZEPINE [Concomitant]

REACTIONS (21)
  - BUNDLE BRANCH BLOCK RIGHT [None]
  - C-REACTIVE PROTEIN INCREASED [None]
  - CARDIAC FAILURE CONGESTIVE [None]
  - CARDIOVASCULAR DISORDER [None]
  - CIRCULATORY COLLAPSE [None]
  - DISEASE RECURRENCE [None]
  - HYPERLIPIDAEMIA [None]
  - KETOSIS [None]
  - METABOLIC ACIDOSIS [None]
  - PROPOFOL INFUSION SYNDROME [None]
  - PULMONARY HYPERTENSION [None]
  - PYREXIA [None]
  - RESPIRATORY FAILURE [None]
  - RHABDOMYOLYSIS [None]
  - STATUS EPILEPTICUS [None]
  - TORSADE DE POINTES [None]
  - TRICUSPID VALVE INCOMPETENCE [None]
  - VENTRICULAR ARRHYTHMIA [None]
  - VENTRICULAR EXTRASYSTOLES [None]
  - VENTRICULAR FIBRILLATION [None]
  - VENTRICULAR TACHYCARDIA [None]
